FAERS Safety Report 5765308-6 (Version None)
Quarter: 2008Q2

REPORT INFORMATION
  Report Type: 
  Country: None (occurrence: None)
  Receive Date: 20080609
  Receipt Date: 20080609
  Transmission Date: 20081010
  Serious: Yes (Hospitalization)
  Sender: FDA-Public Use
  Company Number: None

PATIENT
  Age: 59 Year
  Sex: Female
  Weight: 51.6 kg

DRUGS (11)
  1. TEMOZOLOMIDE [Suspect]
     Indication: DRUG USE FOR UNKNOWN INDICATION
     Dosage: 300 MG DAY 1 TO 5 PO
     Route: 048
     Dates: start: 20080428, end: 20080502
  2. VELCADE [Suspect]
     Indication: DRUG USE FOR UNKNOWN INDICATION
     Dosage: 2.2 MG DAY 2,5,9 AND 12 IV BOLUS
     Route: 040
     Dates: start: 20080429, end: 20080509
  3. LACTULOSE [Concomitant]
  4. NEXIUM [Concomitant]
  5. MORPHINE CADD PUMP [Concomitant]
  6. ATIVAN [Concomitant]
  7. D5/NORMAL SALINE [Concomitant]
  8. LASIX [Concomitant]
  9. COLACE [Concomitant]
  10. MIRALAX [Concomitant]
  11. POTASSIUM CHLORIDE [Concomitant]

REACTIONS (11)
  - AGITATION [None]
  - ANXIETY [None]
  - APHAGIA [None]
  - ARTHRALGIA [None]
  - BACK PAIN [None]
  - CONFUSIONAL STATE [None]
  - CONSTIPATION [None]
  - DRUG DOSE OMISSION [None]
  - HYPOKALAEMIA [None]
  - PROCTALGIA [None]
  - RECTAL SPASM [None]
